FAERS Safety Report 8988423 (Version 1)
Quarter: 2012Q4

REPORT INFORMATION
  Report Type: 
  Country: US (occurrence: None)
  Receive Date: 20121221
  Receipt Date: 20121221
  Transmission Date: 20130627
  Serious: Yes (Hospitalization)
  Sender: FDA-Public Use
  Company Number: None

PATIENT
  Sex: Female
  Weight: 58.85 kg

DRUGS (7)
  1. BEVACIZUMAB [Suspect]
  2. CARBOPLATIN [Suspect]
  3. PACLITAXEL [Suspect]
  4. CIPRO [Concomitant]
  5. FLUCONAZOLE [Suspect]
  6. ITRACONAZOLE [Suspect]
  7. TOBRAMYCIN [Suspect]

REACTIONS (9)
  - Ear infection [None]
  - Dyspnoea [None]
  - Diarrhoea [None]
  - Asthenia [None]
  - Decreased appetite [None]
  - Fatigue [None]
  - Hypotension [None]
  - Neutropenia [None]
  - Thrombocytopenia [None]
